FAERS Safety Report 6204728-2 (Version None)
Quarter: 2009Q2

REPORT INFORMATION
  Report Type: 
  Country: None (occurrence: None)
  Receive Date: 20090527
  Receipt Date: 20090514
  Transmission Date: 20091009
  Serious: Yes (Hospitalization)
  Sender: FDA-Public Use
  Company Number: KR-PFIZER INC-2009214908

PATIENT
  Age: 74 Year

DRUGS (4)
  1. SUNITINIB MALATE [Suspect]
     Indication: MALIGNANT NEOPLASM OF ISLETS OF LANGERHANS
     Dosage: 25 MG, 1X/DAY
     Route: 048
     Dates: start: 20071211
  2. ALDACTONE [Concomitant]
     Indication: OEDEMA
     Dosage: UNK
     Dates: start: 20081001
  3. LASIX [Concomitant]
     Indication: OEDEMA
     Dosage: UNK
     Dates: start: 20081001
  4. MEGACE [Concomitant]
     Indication: ANOREXIA
     Dosage: UNK
     Dates: start: 20090318

REACTIONS (1)
  - PNEUMATOSIS INTESTINALIS [None]
